FAERS Safety Report 9633099 (Version 2)
Quarter: 2013Q4

REPORT INFORMATION
  Report Type: Spontaneous
  Country: JP (occurrence: JP)
  Receive Date: 20131018
  Receipt Date: 20131018
  Transmission Date: 20140711
  Serious: Yes (Life-Threatening, Hospitalization)
  Sender: FDA-Public Use
  Company Number: JP-ROCHE-1166055

PATIENT
  Age: 73 Year
  Sex: Male
  Weight: 60 kg

DRUGS (6)
  1. AVASTIN [Suspect]
     Indication: LUNG ADENOCARCINOMA METASTATIC
     Route: 041
     Dates: start: 20120731, end: 20120823
  2. CARBOPLATIN [Concomitant]
     Indication: LUNG ADENOCARCINOMA METASTATIC
     Route: 041
     Dates: start: 20120731, end: 20120823
  3. PACLITAXEL [Concomitant]
     Indication: LUNG ADENOCARCINOMA METASTATIC
     Route: 041
     Dates: start: 20120731, end: 20120823
  4. LOXOPROFEN [Concomitant]
     Indication: NECK PAIN
     Route: 048
     Dates: start: 20120724
  5. LOXOPROFEN [Concomitant]
     Indication: NEURALGIA
     Route: 048
     Dates: start: 20120724
  6. MAGLAX [Concomitant]
     Indication: CONSTIPATION
     Route: 048
     Dates: start: 20120704

REACTIONS (2)
  - Epistaxis [Recovering/Resolving]
  - Shock haemorrhagic [Unknown]
